FAERS Safety Report 5260817-0 (Version None)
Quarter: 2007Q1

REPORT INFORMATION
  Report Type: 
  Country: None (occurrence: None)
  Receive Date: 20070309
  Receipt Date: 20070223
  Transmission Date: 20070707
  Serious: Yes (Death)
  Sender: FDA-Public Use
  Company Number: GB-SHR-94276

PATIENT
  Age: 45 Year
  Sex: Female

DRUGS (3)
  1. FLUDARABINE [Suspect]
     Dosage: 25 MG/M^2
     Route: 042
     Dates: start: 19921123, end: 19930108
  2. DICLOFENAC SODIUM [Concomitant]
     Dates: start: 19921101
  3. CIMETIDINE HCL [Concomitant]
     Dates: start: 19920813

REACTIONS (4)
  - HEADACHE [None]
  - HEMIPLEGIA [None]
  - PARAESTHESIA [None]
  - PARALYSIS [None]
